FAERS Safety Report 4576170-1 (Version None)
Quarter: 2005Q1

REPORT INFORMATION
  Report Type: 
  Country: None (occurrence: None)
  Receive Date: 20050201
  Receipt Date: 20050201
  Transmission Date: 20050727
  Serious: Yes (Death)
  Sender: FDA-Public Use
  Company Number: None

PATIENT
  Age: 43 Year
  Sex: Male
  Weight: 178 kg

DRUGS (9)
  1. REMICADE [Suspect]
     Indication: PSORIATIC ARTHROPATHY
     Dosage: 1200MG IV
     Route: 042
     Dates: start: 20020723, end: 20050101
  2. METHOTREXATE [Concomitant]
  3. INSULIN [Concomitant]
  4. FUROSEMIDE [Concomitant]
  5. FOLIC ACID [Concomitant]
  6. FLUOCINONIDE OINT [Concomitant]
  7. DICLOFENAC [Concomitant]
  8. VICODIN [Concomitant]
  9. TRIAMCINOLONE [Concomitant]

REACTIONS (2)
  - CARDIAC FAILURE [None]
  - CARDIOMYOPATHY [None]
